FAERS Safety Report 20619920 (Version 1)
Quarter: 2022Q1

REPORT INFORMATION
  Report Type: Spontaneous
  Country: US (occurrence: None)
  Receive Date: 20220321
  Receipt Date: 20220321
  Transmission Date: 20220423
  Serious: No
  Sender: FDA-Public Use
  Company Number: None

PATIENT
  Age: 61 Year
  Sex: Female
  Weight: 78.7 kg

DRUGS (8)
  1. IBRANCE [Suspect]
     Active Substance: PALBOCICLIB
     Indication: Breast cancer
     Dosage: OTHER FREQUENCY : 3W ON,1W OF;?
     Route: 048
  2. BENZONATATE [Concomitant]
     Active Substance: BENZONATATE
  3. MINERALS\VITAMINS [Concomitant]
     Active Substance: MINERALS\VITAMINS
  4. FASLODEX [Concomitant]
     Active Substance: FULVESTRANT
  5. LEVOTHYROXINE [Concomitant]
     Active Substance: LEVOTHYROXINE
  6. CALCIUM [Concomitant]
     Active Substance: CALCIUM
  7. VALTREX [Concomitant]
     Active Substance: VALACYCLOVIR HYDROCHLORIDE
  8. ZOMETA [Concomitant]
     Active Substance: ZOLEDRONIC ACID

REACTIONS (1)
  - Disease progression [None]
